FAERS Safety Report 21678294 (Version 1)
Quarter: 2022Q4

REPORT INFORMATION
  Report Type: Spontaneous
  Country: BE (occurrence: BE)
  Receive Date: 20221203
  Receipt Date: 20221203
  Transmission Date: 20230112
  Serious: Yes (Hospitalization, Other)
  Sender: FDA-Public Use
  Company Number: None

PATIENT
  Age: 65 Year
  Sex: Male
  Weight: 89 kg

DRUGS (15)
  1. TRAZODONE [Suspect]
     Active Substance: TRAZODONE HYDROCHLORIDE
     Indication: Sleep disorder
     Dosage: 50 MILLIGRAM DAILY; 1 TIME PER DAY 50 MG BEFORE SLEEPING ,   THERAPY END DATE : NASK
     Dates: start: 20180605
  2. XANAX [Suspect]
     Active Substance: ALPRAZOLAM
     Indication: Anxiety
     Dosage: 1 MILLIGRAM DAILY; 0.5 MG 2 TIMES A DAY STILL , THERAPY END DATE : NASK , FORM STRENGTH : 0.5 MG , U
     Dates: start: 20180403
  3. GLUCOPHAGE [Suspect]
     Active Substance: METFORMIN HYDROCHLORIDE
     Indication: Diabetes mellitus
     Dosage: 850 MILLIGRAM DAILY; 1 TABLET OF 850 MG , THERAPY END DATE : NASK
     Dates: start: 20201103
  4. PROPRANOLOL [Suspect]
     Active Substance: PROPRANOLOL HYDROCHLORIDE
     Indication: Hypertension
     Dosage: 40 MILLIGRAM DAILY; 20 MG 2 TIMES A DAY  , THERAPY END DATE : NASK , FORM STRENGTH : 40 MG, FREQUENC
     Dates: start: 20201103
  5. EFFEXOR XR [Concomitant]
     Active Substance: VENLAFAXINE HYDROCHLORIDE
     Indication: Product used for unknown indication
     Dosage: FORM STRENGTH : 75 MG , UNIT DOSE : 225 MG , FREQUENCY TIME : 1 DAY
  6. MAGNESIUM [Concomitant]
     Active Substance: MAGNESIUM
     Indication: Product used for unknown indication
  7. ACETYLCYSTEINE [Concomitant]
     Active Substance: ACETYLCYSTEINE
     Indication: Product used for unknown indication
     Dosage: FORM STRENGTH : 600 MG , UNIT DOSE : 600 MG , FREQUENCY TIME : 1 DAY
  8. PANTOMED [Concomitant]
     Indication: Product used for unknown indication
     Dosage: FORM STRENGTH : 40 MG   , UNIT DOSE : 80 MG   , FREQUENCY TIME :   1 DAY
  9. TRELEGY ELLIPTA [Concomitant]
     Active Substance: FLUTICASONE FUROATE\UMECLIDINIUM BROMIDE\VILANTEROL TRIFENATATE
     Indication: Product used for unknown indication
     Dosage: UNIT DOSE : 1 DF  , FREQUENCY TIME : 1 DAY
  10. EXFORGE [Concomitant]
     Active Substance: AMLODIPINE BESYLATE\VALSARTAN
     Indication: Product used for unknown indication
     Dosage: 5 MG/160 MG , UNIT DOSE :  1 DF , FREQUENCY TIME : 1 DAY
  11. REQUIP - MODUTAB [Concomitant]
     Indication: Product used for unknown indication
     Dosage: FORM STRENGTH : 8 MG   , UNIT DOSE : 8 MG   , FREQUENCY TIME : 1 DAY
  12. OTILONIUM BROMIDE [Concomitant]
     Active Substance: OTILONIUM BROMIDE
     Indication: Product used for unknown indication
     Dosage: FORM STRENGTH : 40 MG   , UNIT DOSE :  80 MG  , FREQUENCY TIME : 1 DAY
  13. MELATONIN [Concomitant]
     Active Substance: MELATONIN
     Indication: Product used for unknown indication
     Dosage: FORM STRENGTH :  2 MG  , UNIT DOSE : 2 MG   , FREQUENCY TIME :1 DAY
  14. LYRICA [Concomitant]
     Active Substance: PREGABALIN
     Indication: Product used for unknown indication
     Dosage: UNIT DOSE : 225 MG   , FREQUENCY TIME :  1 DAY
  15. AZITHROMYCIN [Concomitant]
     Active Substance: AZITHROMYCIN
     Indication: Product used for unknown indication
     Dosage: UNIT DOSE :  500 MG  , FREQUENCY TIME :  3 WEEKS

REACTIONS (7)
  - Dyspnoea [Not Recovered/Not Resolved]
  - Eye disorder [Not Recovered/Not Resolved]
  - Musculoskeletal stiffness [Not Recovered/Not Resolved]
  - Facial paralysis [Not Recovered/Not Resolved]
  - Balance disorder [Not Recovered/Not Resolved]
  - Hallucination [Not Recovered/Not Resolved]
  - Tinnitus [Not Recovered/Not Resolved]
